FAERS Safety Report 7148175-8 (Version None)
Quarter: 2010Q4

REPORT INFORMATION
  Report Type: 
  Country: None (occurrence: None)
  Receive Date: 20101209
  Receipt Date: 20101124
  Transmission Date: 20110411
  Serious: No
  Sender: FDA-Public Use
  Company Number: US-B.I. PHARMACEUTICALS,INC./RIDGEFIELD-2010-BP-12609BP

PATIENT
  Sex: Female

DRUGS (9)
  1. COMBIVENT [Suspect]
     Indication: CHRONIC OBSTRUCTIVE PULMONARY DISEASE
     Dosage: 16 PUF
     Route: 055
  2. COMBIVENT [Suspect]
     Indication: EMPHYSEMA
  3. MICARDIS [Concomitant]
  4. THEOPHYLLINE [Concomitant]
  5. POT CHLOR [Concomitant]
  6. SINGULAIR [Concomitant]
  7. ADVAIR [Concomitant]
  8. FUROSEMIDE [Concomitant]
  9. ALENDRONATE [Concomitant]

REACTIONS (2)
  - DYSPNOEA [None]
  - MALAISE [None]
